FAERS Safety Report 4355023-8 (Version None)
Quarter: 2004Q2

REPORT INFORMATION
  Report Type: 
  Country: None (occurrence: None)
  Receive Date: 20040504
  Receipt Date: 20040421
  Transmission Date: 20050107
  Serious: Yes (Death, Hospitalization)
  Sender: FDA-Public Use
  Company Number: US-JNJFOC-20040303473

PATIENT
  Age: 54 Year
  Sex: Male

DRUGS (10)
  1. REMICADE [Suspect]
     Indication: RHEUMATOID ARTHRITIS
     Dosage: 3 -4 MG/KG, INTRAVENOUS
     Route: 042
     Dates: start: 20020128
  2. REMICADE [Suspect]
     Indication: RHEUMATOID ARTHRITIS
     Dosage: 3 -4 MG/KG, INTRAVENOUS
     Route: 042
     Dates: start: 20021022
  3. REMICADE [Suspect]
     Indication: RHEUMATOID ARTHRITIS
     Dosage: 3 -4 MG/KG, INTRAVENOUS
     Route: 042
     Dates: start: 20021105
  4. REMICADE [Suspect]
     Indication: RHEUMATOID ARTHRITIS
     Dosage: 3 -4 MG/KG, INTRAVENOUS
     Route: 042
     Dates: start: 20021203
  5. REMICADE [Suspect]
     Indication: RHEUMATOID ARTHRITIS
     Dosage: 3 -4 MG/KG, INTRAVENOUS
     Route: 042
     Dates: start: 20030708
  6. REMICADE [Suspect]
     Indication: RHEUMATOID ARTHRITIS
     Dosage: 3 -4 MG/KG, INTRAVENOUS
     Route: 042
     Dates: start: 20030911
  7. REMICADE [Suspect]
     Indication: RHEUMATOID ARTHRITIS
     Dosage: 3 -4 MG/KG, INTRAVENOUS
     Route: 042
     Dates: start: 20031217
  8. METHOTREXATE [Concomitant]
  9. PREDNISONE [Concomitant]
  10. PLAQUINAL (HYDROXYCHLOROQUINE PHOSPHATE) [Concomitant]

REACTIONS (2)
  - PNEUMONIA [None]
  - RHEUMATOID LUNG [None]
